FAERS Safety Report 8353636-X (Version None)
Quarter: 2012Q2

REPORT INFORMATION
  Report Type: 
  Country: None (occurrence: None)
  Receive Date: 20120511
  Receipt Date: 20120430
  Transmission Date: 20120825
  Serious: No
  Sender: FDA-Public Use
  Company Number: US-ENDO PHARMACEUTICALS INC.-OPCR20120646

PATIENT
  Sex: Female

DRUGS (2)
  1. OPANA ER [Concomitant]
     Dosage: UNKNOWN
     Route: 048
     Dates: end: 20120201
  2. OPANA ER [Suspect]
     Indication: PRODUCT USED FOR UNKNOWN INDICATION
     Dosage: UNKNOWN
     Route: 048
     Dates: start: 20120201

REACTIONS (1)
  - GASTROINTESTINAL OBSTRUCTION [None]
